FAERS Safety Report 13768425 (Version 1)
Quarter: 2017Q3

REPORT INFORMATION
  Report Type: Spontaneous
  Country: US (occurrence: US)
  Receive Date: 20170719
  Receipt Date: 20170719
  Transmission Date: 20171127
  Serious: No
  Sender: FDA-Public Use
  Company Number: None

PATIENT
  Age: 66 Year
  Sex: Female
  Weight: 52.65 kg

DRUGS (10)
  1. MAGNESIUM [Concomitant]
     Active Substance: MAGNESIUM
  2. VAGIFEM [Concomitant]
     Active Substance: ESTRADIOL
  3. AZELESTINE HCL [Concomitant]
  4. HYDROCHLOROTHIAZIDE. [Concomitant]
     Active Substance: HYDROCHLOROTHIAZIDE
  5. ZETIA [Concomitant]
     Active Substance: EZETIMIBE
  6. CALCIUM [Concomitant]
     Active Substance: CALCIUM
  7. ALLERGY SHOTS [Concomitant]
     Active Substance: UNSPECIFIED INGREDIENT
  8. MULTIVITAMIN [Concomitant]
     Active Substance: VITAMINS
  9. LUTEIN [Concomitant]
     Active Substance: LUTEIN
  10. EZETIMIBE 10 MG [Suspect]
     Active Substance: EZETIMIBE
     Indication: BLOOD CHOLESTEROL
     Dosage: ?          OTHER STRENGTH:MG;QUANTITY:1 TABLET(S);?
     Route: 048
     Dates: start: 20170701, end: 20170709

REACTIONS (8)
  - Muscle spasms [None]
  - Abdominal distension [None]
  - Product substitution issue [None]
  - Headache [None]
  - Flatulence [None]
  - Constipation [None]
  - Diarrhoea [None]
  - Nausea [None]

NARRATIVE: CASE EVENT DATE: 20170703
